FAERS Safety Report 9518211 (Version 1)
Quarter: 2013Q3

REPORT INFORMATION
  Report Type: Spontaneous
  Country: US (occurrence: None)
  Receive Date: 20130910
  Receipt Date: 20130910
  Transmission Date: 20140515
  Serious: Yes (Disabling)
  Sender: FDA-Public Use
  Company Number: None

PATIENT
  Age: 72 Year
  Sex: Female
  Weight: 81.65 kg

DRUGS (3)
  1. LEVOFLOXACIN [Suspect]
     Dosage: 3 PILLS
     Route: 048
  2. HYDROCODONE /ACETAMINOPHEN [Concomitant]
  3. MELATONIN [Concomitant]

REACTIONS (8)
  - Fatigue [None]
  - Musculoskeletal pain [None]
  - Pain [None]
  - Performance status decreased [None]
  - Groin pain [None]
  - Arthralgia [None]
  - Abasia [None]
  - Insomnia [None]
